FAERS Safety Report 19531173 (Version 3)
Quarter: 2021Q3

REPORT INFORMATION
  Report Type: Spontaneous
  Country: US (occurrence: US)
  Receive Date: 20210714
  Receipt Date: 20210809
  Transmission Date: 20211014
  Serious: No
  Sender: FDA-Public Use
  Company Number: US-ASTRAZENECA-2021A532485

PATIENT
  Sex: Female
  Weight: 77.6 kg

DRUGS (9)
  1. FASENRA [Suspect]
     Active Substance: BENRALIZUMAB
     Indication: ASTHMA
     Dosage: FIRST 3 DOSES A MONTH A PART, THEN EVERY 8 WEEKS THEREAFTER
     Route: 058
     Dates: start: 20210423
  2. BREO ELLIPTA [Concomitant]
     Active Substance: FLUTICASONE FUROATE\VILANTEROL TRIFENATATE
     Indication: ASTHMA
     Dosage: 200 MCG?25MG 1 PUFF
     Route: 055
     Dates: start: 20210104
  3. EPIPEN [Concomitant]
     Active Substance: EPINEPHRINE
  4. FLONASE [Concomitant]
     Active Substance: FLUTICASONE PROPIONATE
  5. RESPIMAT [Concomitant]
     Indication: ASTHMA
     Dosage: 200MCG?100MCG: 1 PUFF X4 PRN
     Route: 055
     Dates: start: 20210210
  6. DULARA [Concomitant]
  7. FASENRA [Suspect]
     Active Substance: BENRALIZUMAB
     Indication: ASTHMA
     Route: 058
     Dates: start: 20210521
  8. FASENRA [Suspect]
     Active Substance: BENRALIZUMAB
     Indication: ASTHMA
     Route: 058
     Dates: start: 20210618
  9. COMBIVENT [Concomitant]
     Active Substance: ALBUTEROL SULFATE\IPRATROPIUM BROMIDE

REACTIONS (3)
  - Dyspnoea [Unknown]
  - Dyspnoea exertional [Recovering/Resolving]
  - Lung disorder [Unknown]
